FAERS Safety Report 4816009-X (Version None)
Quarter: 2005Q4

REPORT INFORMATION
  Report Type: 
  Country: None (occurrence: None)
  Receive Date: 20051026
  Receipt Date: 20051013
  Transmission Date: 20060501
  Serious: Yes (Hospitalization, Other)
  Sender: FDA-Public Use
  Company Number: 2005129666

PATIENT
  Age: 74 Year
  Sex: Female

DRUGS (16)
  1. LIPITOR [Suspect]
     Indication: HYPERLIPIDAEMIA
     Dosage: 40 MG (40 MG, 1 IN 1 D)
     Dates: end: 20050601
  2. ANTICOAGULANTS (ANTITHROMBOTIC AGENTS) [Concomitant]
  3. ADVAIR DISKUS (FLUTICASONE PROPIONATE, SALMETEROL XINAFOATE) [Concomitant]
  4. ALBUTEROL [Concomitant]
  5. ALPHAGAN [Concomitant]
  6. AMBIEN [Concomitant]
  7. FOSAMAX [Concomitant]
  8. LEVOTHROID [Concomitant]
  9. LISINOPRIL [Concomitant]
  10. METOPROLOL TARTRATE [Concomitant]
  11. NASONEX [Concomitant]
  12. PLAVIX [Concomitant]
  13. ACTOS [Concomitant]
  14. GLYBURIDE [Concomitant]
  15. INSULIN [Concomitant]
  16. METFORMIN HCL [Concomitant]

REACTIONS (8)
  - ARTERIAL OCCLUSIVE DISEASE [None]
  - BALANCE DISORDER [None]
  - BLOOD LACTATE DEHYDROGENASE INCREASED [None]
  - DYSSTASIA [None]
  - FALL [None]
  - MUSCULAR WEAKNESS [None]
  - MYOPATHY [None]
  - MYOSITIS [None]
